FAERS Safety Report 5886235-X (Version None)
Quarter: 2008Q3

REPORT INFORMATION
  Report Type: 
  Country: None (occurrence: None)
  Receive Date: 20080917
  Receipt Date: 20080903
  Transmission Date: 20090109
  Serious: Yes (Hospitalization, Other)
  Sender: FDA-Public Use
  Company Number: ES-ELI_LILLY_AND_COMPANY-ES200809001163

PATIENT
  Age: 87 Year
  Sex: Female

DRUGS (6)
  1. FORTEO [Suspect]
     Indication: OSTEOPOROSIS
     Dosage: 20 UG, UNKNOWN
     Route: 058
     Dates: start: 20080711, end: 20080731
  2. MORPHINE [Concomitant]
     Dosage: UNK, UNKNOWN
     Route: 065
  3. INCITAL [Concomitant]
     Indication: PAIN
     Dosage: UNK, UNKNOWN
     Route: 065
  4. CARBAMAZEPINE [Concomitant]
     Indication: TRIGEMINAL NERVE DISORDER
     Dosage: UNK, UNKNOWN
     Route: 065
  5. ASPIRIN [Concomitant]
     Dosage: UNK, UNKNOWN
     Route: 065
  6. LYRICA [Concomitant]
     Dosage: 150 MG, UNKNOWN
     Route: 065

REACTIONS (8)
  - ARTHRALGIA [None]
  - CEREBROVASCULAR ACCIDENT [None]
  - DYSPHAGIA [None]
  - FEELING ABNORMAL [None]
  - MOBILITY DECREASED [None]
  - ORAL DISCOMFORT [None]
  - PAIN [None]
  - PAIN IN EXTREMITY [None]
